FAERS Safety Report 20997061 (Version 7)
Quarter: 2022Q4

REPORT INFORMATION
  Report Type: Spontaneous
  Country: JP (occurrence: JP)
  Receive Date: 20220623
  Receipt Date: 20221102
  Transmission Date: 20230113
  Serious: Yes (Death, Hospitalization)
  Sender: FDA-Public Use
  Company Number: JP-JNJFOC-20220642305

PATIENT
  Age: 75 Year
  Sex: Male
  Weight: 70 kg

DRUGS (9)
  1. OPSUMIT [Suspect]
     Active Substance: MACITENTAN
     Indication: Pulmonary arterial hypertension
     Route: 048
     Dates: start: 20220113, end: 20221020
  2. OPSUMIT [Suspect]
     Active Substance: MACITENTAN
     Route: 048
     Dates: start: 20220122
  3. UPTRAVI [Suspect]
     Active Substance: SELEXIPAG
     Indication: Pulmonary arterial hypertension
     Dosage: (0.8 MG/24 HOURS)
     Route: 048
     Dates: start: 20220406, end: 202206
  4. UPTRAVI [Suspect]
     Active Substance: SELEXIPAG
     Indication: Pulmonary arterial hypertension
     Dosage: DOSE INCREASED, (2.0 MG/24 HOURS)
     Route: 048
     Dates: start: 202206, end: 2022
  5. UPTRAVI [Suspect]
     Active Substance: SELEXIPAG
     Dosage: (1.2 MG/24 HOURS)
     Route: 048
     Dates: start: 2022, end: 2022
  6. UPTRAVI [Suspect]
     Active Substance: SELEXIPAG
     Dosage: (1.6 MG/24 HOURS)
     Route: 048
     Dates: start: 20220407, end: 202206
  7. ADCIRCA [Concomitant]
     Active Substance: TADALAFIL
     Indication: Pulmonary arterial hypertension
     Route: 048
     Dates: start: 20200122
  8. ADCIRCA [Concomitant]
     Active Substance: TADALAFIL
     Route: 048
     Dates: end: 20221020
  9. OXYGEN [Concomitant]
     Active Substance: OXYGEN
     Route: 055

REACTIONS (7)
  - Death [Fatal]
  - Right ventricular failure [Recovering/Resolving]
  - Pulmonary arterial hypertension [Recovering/Resolving]
  - Pneumonia [Recovering/Resolving]
  - Decreased appetite [Recovering/Resolving]
  - Vomiting [Recovering/Resolving]
  - Weight decreased [Recovering/Resolving]

NARRATIVE: CASE EVENT DATE: 20220101
